FAERS Safety Report 15674609 (Version 4)
Quarter: 2019Q3

REPORT INFORMATION
  Report Type: Spontaneous
  Country: JP (occurrence: JP)
  Receive Date: 20181130
  Receipt Date: 20190703
  Transmission Date: 20191004
  Serious: Yes (Hospitalization, Other)
  Sender: FDA-Public Use
  Company Number: JP-AMGEN-JPNSP2018169490

PATIENT
  Age: 58 Year
  Sex: Male
  Weight: 73.1 kg

DRUGS (16)
  1. PARSABIV [Suspect]
     Active Substance: ETELCALCETIDE HYDROCHLORIDE
     Indication: HYPERPARATHYROIDISM SECONDARY
     Dosage: 5 MG, 3 TIMES/WK (5 MG, Q56H)
     Route: 042
     Dates: start: 20180906
  2. EPOETIN ALFA [Concomitant]
     Active Substance: ERYTHROPOIETIN
     Dosage: 9000 INTERNATIONAL UNIT, QWK (9000 IU, QW)
     Route: 042
     Dates: end: 20190207
  3. ADALAT [Concomitant]
     Active Substance: NIFEDIPINE
     Dosage: 40 MILLIGRAM, BID (40 MG, Q12H)
     Route: 048
  4. EPOETIN ALFA [Concomitant]
     Active Substance: ERYTHROPOIETIN
     Indication: ANAEMIA
     Dosage: 2250 INTERNATIONAL UNIT, QWK (2250 IU, QW)
     Route: 042
     Dates: end: 20181113
  5. CRESTOR [Concomitant]
     Active Substance: ROSUVASTATIN CALCIUM
     Dosage: 2.5 MILLIGRAM, QD (2.5 MG, EVERYDAY)
     Route: 048
  6. HEPARIN [Concomitant]
     Active Substance: HEPARIN SODIUM
     Dosage: UNK, DOSE UNSPECIFIED
     Route: 065
     Dates: end: 20181113
  7. EPOETIN ALFA [Concomitant]
     Active Substance: ERYTHROPOIETIN
     Dosage: 2250 INTERNATIONAL UNIT, QWK (2250 IU, QW)
     Route: 042
  8. BAYASPIRIN [Concomitant]
     Active Substance: ASPIRIN
     Dosage: 100 MILLIGRAM, QD (100 MG, EVERYDAY)
     Route: 048
  9. ARTIST [Concomitant]
     Active Substance: CARVEDILOL
     Dosage: 2.5 MILLIGRAM, QD (2.5 MG, EVERYDAY)
     Route: 048
  10. EPOETIN ALFA [Concomitant]
     Active Substance: ERYTHROPOIETIN
     Dosage: 2250 INTERNATIONAL UNIT, QWK (2250 IU, QW)
     Route: 042
     Dates: end: 20190307
  11. TANKARU [Concomitant]
     Dosage: 500 MILLIGRAM, TID (500 MG, Q8H)
     Route: 048
  12. OLMETEC [Concomitant]
     Active Substance: OLMESARTAN MEDOXOMIL
     Dosage: 5 MILLIGRAM, BID (5 MG, Q12H)
     Route: 048
  13. HEPARIN [Concomitant]
     Active Substance: HEPARIN SODIUM
     Dosage: UNK, DOSE UNSPECIFIED
     Route: 065
     Dates: start: 20181122
  14. OXAROL [Concomitant]
     Active Substance: MAXACALCITOL
     Indication: HYPERPARATHYROIDISM SECONDARY
     Dosage: 5 MICROGRAM, 3 TIMES/WK (5 UG, Q56H)
     Route: 042
     Dates: start: 20180906
  15. FOSRENOL [Concomitant]
     Active Substance: LANTHANUM CARBONATE
     Dosage: 500 MILLIGRAM, TID (500 MG, Q8H)
     Route: 048
  16. FUROSEMIDE. [Concomitant]
     Active Substance: FUROSEMIDE
     Dosage: 40 MG, EVERYDAY
     Route: 048
     Dates: end: 20181205

REACTIONS (1)
  - Renal abscess [Recovered/Resolved]

NARRATIVE: CASE EVENT DATE: 20181030
